FAERS Safety Report 26120652 (Version 1)
Quarter: 2025Q4

REPORT INFORMATION
  Report Type: Spontaneous
  Country: JP (occurrence: JP)
  Receive Date: 20251204
  Receipt Date: 20251204
  Transmission Date: 20260119
  Serious: Yes (Hospitalization, Other)
  Sender: MERCK SHARP & DOHME LLC
  Company Number: JP-009507513-2355996

PATIENT
  Age: 8 Decade
  Sex: Male

DRUGS (2)
  1. WELIREG [Suspect]
     Active Substance: BELZUTIFAN
     Indication: Renal cell carcinoma
     Dosage: STRENGTH: 40MG
     Route: 048
     Dates: start: 202509, end: 202509
  2. WELIREG [Suspect]
     Active Substance: BELZUTIFAN
     Indication: Renal cell carcinoma
     Dosage: STRENGTH: 40MG; RESUMED AT A REDUCED DOSE
     Route: 048
     Dates: start: 2025, end: 202510

REACTIONS (8)
  - Tumour lysis syndrome [Recovered/Resolved]
  - Physical deconditioning [Unknown]
  - Lymph node pain [Unknown]
  - C-reactive protein increased [Recovering/Resolving]
  - Infection [Recovering/Resolving]
  - Blood uric acid increased [Recovering/Resolving]
  - Malignant neoplasm progression [Unknown]
  - Renal disorder [Unknown]

NARRATIVE: CASE EVENT DATE: 20250101
